FAERS Safety Report 22003776 (Version 1)
Quarter: 2023Q1

REPORT INFORMATION
  Report Type: Spontaneous
  Country: PT (occurrence: PT)
  Receive Date: 20230217
  Receipt Date: 20230217
  Transmission Date: 20230417
  Serious: Yes (Hospitalization)
  Sender: FDA-Public Use
  Company Number: None

PATIENT
  Age: 83 Year
  Sex: Male

DRUGS (10)
  1. ERLEADA [Suspect]
     Active Substance: APALUTAMIDE
     Indication: Prostate cancer
     Dosage: 240 MG ID
     Route: 048
     Dates: start: 20220915
  2. ERLEADA [Suspect]
     Active Substance: APALUTAMIDE
     Route: 048
  3. LASIX [Concomitant]
     Active Substance: FUROSEMIDE
  4. SACUBITRIL\VALSARTAN [Concomitant]
     Active Substance: SACUBITRIL\VALSARTAN
     Dosage: 2ID
  5. BUDESONIDE [Concomitant]
     Active Substance: BUDESONIDE
     Dosage: A NOITE
  6. ALBUTEROL [Concomitant]
     Active Substance: ALBUTEROL
     Dosage: SOS
  7. INDACATEROL MALEATE [Concomitant]
     Active Substance: INDACATEROL MALEATE
     Dosage: 1ID DE MANHA
  8. SIMVASTATIN [Concomitant]
     Active Substance: SIMVASTATIN
  9. ASPIRIN [Concomitant]
     Active Substance: ASPIRIN
  10. SPIRIVA RESPIMAT [Concomitant]
     Active Substance: TIOTROPIUM BROMIDE
     Dosage: AO ALMOCO

REACTIONS (2)
  - Skin toxicity [Recovering/Resolving]
  - Rash [Recovering/Resolving]

NARRATIVE: CASE EVENT DATE: 20221001
